FAERS Safety Report 14607591 (Version 1)
Quarter: 2018Q1

REPORT INFORMATION
  Report Type: Report from Study
  Country: BR (occurrence: BR)
  Receive Date: 20180307
  Receipt Date: 20180307
  Transmission Date: 20180509
  Serious: Yes (Other)
  Sender: FDA-Public Use
  Company Number: PHHY2016BR025377

PATIENT
  Sex: Female
  Weight: 60 kg

DRUGS (2)
  1. EXJADE [Suspect]
     Active Substance: DEFERASIROX
     Indication: MYELODYSPLASTIC SYNDROME
     Dosage: 3 DF, QD (1500 MG QD)
     Route: 048
     Dates: start: 2015
  2. ERYTHROPOIETIN [Concomitant]
     Active Substance: ERYTHROPOIETIN
     Indication: MYELODYSPLASTIC SYNDROME
     Dosage: 8000 IU, QD (EVERY MORNING)
     Route: 065

REACTIONS (16)
  - Insomnia [Unknown]
  - Pneumonia [Recovered/Resolved]
  - Memory impairment [Unknown]
  - Anaemia [Unknown]
  - Haemoglobin decreased [Unknown]
  - Malaise [Unknown]
  - Fatigue [Unknown]
  - Iron overload [Unknown]
  - Dysphonia [Unknown]
  - Weight decreased [Unknown]
  - Bone marrow disorder [Unknown]
  - Feeling abnormal [Recovering/Resolving]
  - Concomitant disease aggravated [Unknown]
  - Dizziness [Unknown]
  - Serum ferritin increased [Unknown]
  - Abdominal pain upper [Not Recovered/Not Resolved]

NARRATIVE: CASE EVENT DATE: 2008
